FAERS Safety Report 6378792-4 (Version None)
Quarter: 2009Q3

REPORT INFORMATION
  Report Type: 
  Country: None (occurrence: None)
  Receive Date: 20090928
  Receipt Date: 20090911
  Transmission Date: 20100115
  Serious: No
  Sender: FDA-Public Use
  Company Number: BR-AVENTIS-200920713GDDC

PATIENT
  Age: 29 Year
  Sex: Female
  Weight: 96 kg

DRUGS (2)
  1. ARAVA [Suspect]
     Indication: RHEUMATOID ARTHRITIS
     Route: 048
     Dates: start: 20090410, end: 20090820
  2. METHOTREXATE [Suspect]
     Indication: RHEUMATOID ARTHRITIS
     Route: 048
     Dates: start: 20031001, end: 20090820

REACTIONS (1)
  - DRUG EXPOSURE DURING PREGNANCY [None]
